FAERS Safety Report 13691602 (Version 3)
Quarter: 2017Q3

REPORT INFORMATION
  Report Type: Spontaneous
  Country: US (occurrence: US)
  Receive Date: 20170626
  Receipt Date: 20170721
  Transmission Date: 20171127
  Serious: Yes (Other)
  Sender: FDA-Public Use
  Company Number: US-ALEXION-A201706723

PATIENT
  Age: 33 Year
  Sex: Female

DRUGS (3)
  1. SEROQUEL [Concomitant]
     Active Substance: QUETIAPINE FUMARATE
     Indication: BIPOLAR DISORDER
     Route: 065
  2. LITHIUM. [Concomitant]
     Active Substance: LITHIUM
     Indication: BIPOLAR DISORDER
     Route: 065
  3. STRENSIQ [Suspect]
     Active Substance: ASFOTASE ALFA
     Indication: HYPOPHOSPHATASIA
     Dosage: 0.5 ML, SIX TIMES/WEEK
     Route: 058
     Dates: start: 201703

REACTIONS (10)
  - Crying [Unknown]
  - Anxiety [Unknown]
  - Mania [Unknown]
  - Blood count abnormal [Unknown]
  - Amino acid level increased [Not Recovered/Not Resolved]
  - Nightmare [Unknown]
  - Depressed mood [Unknown]
  - Stress [Unknown]
  - Bipolar disorder [Not Recovered/Not Resolved]
  - Dissociation [Unknown]

NARRATIVE: CASE EVENT DATE: 20170608
